FAERS Safety Report 11307515 (Version 1)
Quarter: 2015Q3

REPORT INFORMATION
  Report Type: Spontaneous
  Country: JP (occurrence: JP)
  Receive Date: 20150723
  Receipt Date: 20150723
  Transmission Date: 20151125
  Serious: Yes (Other)
  Sender: FDA-Public Use
  Company Number: JP-MYLANLABS-2015M1024519

PATIENT

DRUGS (4)
  1. ETOPOSIDE. [Suspect]
     Active Substance: ETOPOSIDE
     Indication: CHEMOTHERAPY
     Dosage: 500MG/M2 ON DAYS -6 TO -4
     Route: 065
  2. MESNA. [Suspect]
     Active Substance: MESNA
     Indication: CHEMOTHERAPY
     Dosage: 24MG/KG; 0, 4, 8H AFTER COMPLETION OF CYCLOPHOSPHAMIDE, ETOPOSIDE, RANIMUSTINE
     Route: 042
  3. CYCLOPHOSPHAMIDE. [Suspect]
     Active Substance: CYCLOPHOSPHAMIDE
     Indication: CHEMOTHERAPY
     Dosage: 60MG/KG ON DAYS -7 AND -6
     Route: 065
  4. RANIMUSTINE [Suspect]
     Active Substance: RANIMUSTINE
     Indication: CHEMOTHERAPY
     Dosage: 250MG/M2 ON DAYS -3 AND -2
     Route: 065

REACTIONS (1)
  - Myelodysplastic syndrome [Unknown]
